FAERS Safety Report 13898554 (Version 3)
Quarter: 2018Q3

REPORT INFORMATION
  Report Type: Spontaneous
  Country: JP (occurrence: JP)
  Receive Date: 20170824
  Receipt Date: 20180921
  Transmission Date: 20181010
  Serious: Yes (Other)
  Sender: FDA-Public Use
  Company Number: JP-BAYER-2017-158246

PATIENT
  Age: 78 Year
  Sex: Male

DRUGS (5)
  1. BAYASPIRIN 100 MG [Suspect]
     Active Substance: ASPIRIN
     Dosage: UNK, QD
     Route: 048
     Dates: start: 201412, end: 201707
  2. TERNELIN [Concomitant]
     Active Substance: TIZANIDINE
  3. OPALMON [Concomitant]
     Active Substance: LIMAPROST
  4. EXFORGE [Concomitant]
     Active Substance: AMLODIPINE BESYLATE\VALSARTAN
  5. MEVALOTIN [Concomitant]
     Active Substance: PRAVASTATIN SODIUM

REACTIONS (1)
  - Duodenal ulcer perforation [Unknown]

NARRATIVE: CASE EVENT DATE: 20170706
